FAERS Safety Report 9132555 (Version 1)
Quarter: 2013Q1

REPORT INFORMATION
  Report Type: Report from Study
  Country: DE (occurrence: DE)
  Receive Date: 20130301
  Receipt Date: 20130301
  Transmission Date: 20140127
  Serious: Yes (Other)
  Sender: FDA-Public Use
  Company Number: DE-ROCHE-1177258

PATIENT
  Sex: Female

DRUGS (4)
  1. RANIBIZUMAB [Suspect]
     Indication: AGE-RELATED MACULAR DEGENERATION
     Route: 050
     Dates: start: 20110823
  2. RANIBIZUMAB [Suspect]
     Route: 050
     Dates: start: 20110920
  3. RANIBIZUMAB [Suspect]
     Route: 050
     Dates: start: 20111012
  4. TIMOLOL [Concomitant]
     Route: 065

REACTIONS (4)
  - Retinal pigment epithelial tear [Not Recovered/Not Resolved]
  - Vitreous detachment [Recovered/Resolved]
  - Osteoarthritis [Not Recovered/Not Resolved]
  - Inappropriate schedule of drug administration [Unknown]
